FAERS Safety Report 11754356 (Version 1)
Quarter: 2015Q4

REPORT INFORMATION
  Report Type: Spontaneous
  Country: US (occurrence: None)
  Receive Date: 20151118
  Receipt Date: 20151118
  Transmission Date: 20160304
  Serious: Yes (Other)
  Sender: FDA-Public Use
  Company Number: None

PATIENT
  Age: 77 Year
  Sex: Male
  Weight: 65.77 kg

DRUGS (5)
  1. VIT. D, FOLIC ACID, VIT. B - COMPLEX [Concomitant]
     Active Substance: FOLIC ACID\VITAMINS
  2. LEVOFLOXACIN. [Suspect]
     Active Substance: LEVOFLOXACIN
     Indication: BACTERIAL INFECTION
     Dosage: 1  PILL  DAILY  MOUTH
     Route: 048
     Dates: start: 20151111, end: 20151112
  3. CENTRUM SILVER MULTI VIT. [Concomitant]
  4. METAMUCIEL [Concomitant]
  5. LEVOFLOXACIN. [Suspect]
     Active Substance: LEVOFLOXACIN
     Indication: DACRYOCANALICULITIS
     Dosage: 1  PILL  DAILY  MOUTH
     Route: 048
     Dates: start: 20151111, end: 20151112

REACTIONS (3)
  - Pain in extremity [None]
  - Arthralgia [None]
  - Tendon pain [None]

NARRATIVE: CASE EVENT DATE: 20151111
